FAERS Safety Report 13446442 (Version 1)
Quarter: 2017Q2

REPORT INFORMATION
  Report Type: Report from Study
  Country: KR (occurrence: KR)
  Receive Date: 20170417
  Receipt Date: 20170417
  Transmission Date: 20170830
  Serious: Yes (Hospitalization)
  Sender: FDA-Public Use
  Company Number: KR-ROCHE-1513055

PATIENT
  Age: 70 Year
  Sex: Male
  Weight: 43.6 kg

DRUGS (4)
  1. ATEZOLIZUMAB [Suspect]
     Active Substance: ATEZOLIZUMAB
     Dosage: RESTARTED
     Route: 042
     Dates: start: 20150105
  2. METFORMIN [Concomitant]
     Active Substance: METFORMIN HYDROCHLORIDE
     Indication: DIABETES MELLITUS
     Route: 065
     Dates: start: 20140710
  3. ATEZOLIZUMAB [Suspect]
     Active Substance: ATEZOLIZUMAB
     Indication: NEOPLASM
     Dosage: DATE/TIME OF MOST RECENT DOSE (800 MG) PRIOR TO EVENT: 08/DEC/2014; AT 11:01
     Route: 042
     Dates: start: 20141124
  4. COBIMETINIB [Suspect]
     Active Substance: COBIMETINIB
     Indication: NEOPLASM
     Dosage: DATE/TIME OF MOST RECENT DOSE (60 MG.) PRIOR TO EVENT: 18/DEC/2014; AT 11:40
     Route: 048
     Dates: start: 20141208

REACTIONS (1)
  - Pyrexia [Recovered/Resolved]

NARRATIVE: CASE EVENT DATE: 20141218
